FAERS Safety Report 5349612-1 (Version None)
Quarter: 2007Q2

REPORT INFORMATION
  Report Type: 
  Country: None (occurrence: None)
  Receive Date: 20070607
  Receipt Date: 20070529
  Transmission Date: 20071010
  Serious: Yes (Other)
  Sender: FDA-Public Use
  Company Number: GB-JNJFOC-20070506988

PATIENT
  Age: 48 Year
  Sex: Female
  Weight: 63.6 kg

DRUGS (5)
  1. ITRACONAZOLE [Suspect]
     Indication: BRONCHOPULMONARY ASPERGILLOSIS ALLERGIC
     Route: 048
  2. AZITHROMYCIN [Concomitant]
     Indication: BRONCHOPULMONARY ASPERGILLOSIS ALLERGIC
     Route: 048
  3. AZITHROMYCIN [Concomitant]
     Indication: ASTHMA
     Route: 048
  4. FLIXOTIDE [Concomitant]
     Indication: ASTHMA
     Route: 055
  5. SALBUTAMOL [Concomitant]
     Indication: ASTHMA
     Route: 055

REACTIONS (2)
  - BRONCHOPULMONARY ASPERGILLOSIS ALLERGIC [None]
  - TENDONITIS [None]
